FAERS Safety Report 17842161 (Version 1)
Quarter: 2020Q2

REPORT INFORMATION
  Report Type: Spontaneous
  Country: US (occurrence: US)
  Receive Date: 20200529
  Receipt Date: 20200529
  Transmission Date: 20200714
  Serious: Yes (Other)
  Sender: FDA-Public Use
  Company Number: US-PFIZER INC-2020209983

PATIENT
  Age: 52 Year
  Sex: Female

DRUGS (2)
  1. PACLITAXEL. [Suspect]
     Active Substance: PACLITAXEL
     Indication: VAGINAL ADENOCARCINOMA
     Dosage: 40 MG/M2, WEEKLY
     Dates: start: 20000229, end: 20000414
  2. CISPLATIN. [Suspect]
     Active Substance: CISPLATIN
     Indication: VAGINAL ADENOCARCINOMA
     Dosage: 40 MG/M2, WEEKLY
     Dates: start: 20000229, end: 20000414

REACTIONS (7)
  - Micturition urgency [Unknown]
  - Off label use [Unknown]
  - Hypomagnesaemia [Unknown]
  - Product use in unapproved indication [Unknown]
  - Skin exfoliation [Unknown]
  - Diarrhoea [Unknown]
  - Weight decreased [Unknown]

NARRATIVE: CASE EVENT DATE: 2000
